FAERS Safety Report 15531154 (Version 4)
Quarter: 2018Q4

REPORT INFORMATION
  Report Type: Report from Study
  Country: US (occurrence: US)
  Receive Date: 20181019
  Receipt Date: 20181203
  Transmission Date: 20190205
  Serious: Yes (Other)
  Sender: FDA-Public Use
  Company Number: US-AMGEN-USASL2018134631

PATIENT
  Age: 52 Year
  Sex: Male
  Weight: 116.55 kg

DRUGS (1)
  1. REPATHA [Suspect]
     Active Substance: EVOLOCUMAB
     Indication: BLOOD CHOLESTEROL INCREASED
     Dosage: 140 MG/ML, Q2WK
     Route: 065
     Dates: start: 20170814, end: 20180926

REACTIONS (9)
  - Amnesia [Unknown]
  - Diabetes mellitus [Unknown]
  - Pollakiuria [Unknown]
  - Muscle spasms [Unknown]
  - Blood glucose increased [Unknown]
  - Tinnitus [Unknown]
  - Upper respiratory tract infection [Not Recovered/Not Resolved]
  - Fatigue [Unknown]
  - Influenza like illness [Unknown]
